FAERS Safety Report 5106634-3 (Version None)
Quarter: 2006Q3

REPORT INFORMATION
  Report Type: 
  Country: None (occurrence: None)
  Receive Date: 20060731
  Receipt Date: 20051108
  Transmission Date: 20061208
  Serious: Yes (Disabling, Other)
  Sender: FDA-Public Use
  Company Number: US-JNJFOC-20050605434

PATIENT
  Age: 10 Year
  Sex: Female

DRUGS (7)
  1. RISPERDAL [Suspect]
     Indication: AGGRESSION
     Dosage: 1 MG, 2 IN 1 DAY , ORAL
     Route: 048
     Dates: start: 19960809
  2. RISPERDAL [Suspect]
     Indication: AGGRESSION
     Dosage: 1 MG, 2 IN 1 DAY , ORAL
     Route: 048
     Dates: start: 19980109, end: 20030122
  3. KLONOPIN [Concomitant]
  4. COGENTIN [Concomitant]
  5. KEPPRA [Concomitant]
  6. MIRAPEX [Concomitant]
  7. FLEXERIL [Concomitant]

REACTIONS (8)
  - CONVULSION [None]
  - DYSKINESIA [None]
  - MOVEMENT DISORDER [None]
  - PAIN [None]
  - TARDIVE DYSKINESIA [None]
  - TREMOR [None]
  - URINARY RETENTION [None]
  - WEIGHT DECREASED [None]
